FAERS Safety Report 6115300-7 (Version None)
Quarter: 2009Q1

REPORT INFORMATION
  Report Type: 
  Country: None (occurrence: None)
  Receive Date: 20090313
  Receipt Date: 20090304
  Transmission Date: 20090719
  Serious: Yes (Other)
  Sender: FDA-Public Use
  Company Number: US-JNJFOC-20090301442

PATIENT
  Sex: Male

DRUGS (2)
  1. REMICADE [Suspect]
     Indication: ANKYLOSING SPONDYLITIS
     Route: 042
  2. LEFLUNOMIDE [Concomitant]
     Indication: ANKYLOSING SPONDYLITIS

REACTIONS (3)
  - ABNORMAL SENSATION IN EYE [None]
  - DISTURBANCE IN ATTENTION [None]
  - PRESYNCOPE [None]
